FAERS Safety Report 4492207-2 (Version None)
Quarter: 2004Q4

REPORT INFORMATION
  Report Type: 
  Country: None (occurrence: None)
  Receive Date: 20041101
  Receipt Date: 20041012
  Transmission Date: 20050328
  Serious: Yes (Death, Hospitalization)
  Sender: FDA-Public Use
  Company Number: A03200403438

PATIENT
  Age: 80 Year
  Sex: Female
  Weight: 81.6475 kg

DRUGS (9)
  1. PLAVIX [Suspect]
     Indication: POSTOPERATIVE CARE
     Dosage: 150 MG LOADING DOSE FOLLOWED BY 75 MG DAILY THEREAFTER - ORAL
     Route: 048
     Dates: start: 20010917, end: 20011001
  2. PLAVIX [Suspect]
     Indication: STENT PLACEMENT
     Dosage: 150 MG LOADING DOSE FOLLOWED BY 75 MG DAILY THEREAFTER - ORAL
     Route: 048
     Dates: start: 20010917, end: 20011001
  3. CELECOXIB [Concomitant]
  4. ATENOLOL [Concomitant]
  5. ISOSORBIDE MONONITRATE [Concomitant]
  6. RIFAMPICIN [Concomitant]
  7. ACETYLSALICYLIC ACID [Concomitant]
  8. HEPARIN [Concomitant]
  9. ATORVASTATIN CALCIUM [Concomitant]

REACTIONS (5)
  - DIALYSIS [None]
  - GASTROINTESTINAL HAEMORRHAGE [None]
  - HAEMOGLOBIN DECREASED [None]
  - INFECTION [None]
  - RENAL FAILURE [None]
